FAERS Safety Report 7936242-8 (Version None)
Quarter: 2011Q4

REPORT INFORMATION
  Report Type: 
  Country: None (occurrence: None)
  Receive Date: 20111121
  Receipt Date: 20111107
  Transmission Date: 20120403
  Serious: Yes (Death, Hospitalization)
  Sender: FDA-Public Use
  Company Number: 2011P1010240

PATIENT

DRUGS (7)
  1. CETUXIMAB (NO PREF. NAME) [Suspect]
     Indication: GASTROOESOPHAGEAL CANCER
     Dosage: 500 MG/M^2
  2. IRINOTECAN HYDROCHLORIDE [Suspect]
     Indication: GASTROOESOPHAGEAL CANCER
     Dosage: 180 MG/M^2
  3. ATROPINE [Concomitant]
  4. PREDNISOLONE [Concomitant]
  5. ONDANSETRON [Concomitant]
  6. UNSPECIFIED ANTIEMETICS [Concomitant]
  7. CLEMASTINE FUMARATE [Concomitant]

REACTIONS (1)
  - VOLVULUS [None]
